FAERS Safety Report 14578587 (Version 3)
Quarter: 2018Q1

REPORT INFORMATION
  Report Type: Spontaneous
  Country: JP (occurrence: JP)
  Receive Date: 20180227
  Receipt Date: 20180307
  Transmission Date: 20180509
  Serious: Yes (Other)
  Sender: FDA-Public Use
  Company Number: JP-PFIZER INC-2018078354

PATIENT
  Age: 72 Year
  Sex: Female

DRUGS (9)
  1. CEFTRIAXONE SODIUM. [Suspect]
     Active Substance: CEFTRIAXONE SODIUM
     Indication: KLEBSIELLA TEST POSITIVE
  2. VITAMIN D [Concomitant]
     Active Substance: CHOLECALCIFEROL
     Indication: HYPERTENSION
     Dosage: UNK
  3. VITAMIN D [Concomitant]
     Active Substance: CHOLECALCIFEROL
     Indication: CHRONIC KIDNEY DISEASE
  4. WARFARIN [Concomitant]
     Active Substance: WARFARIN
     Indication: HYPERTENSION
     Dosage: UNK
  5. WARFARIN [Concomitant]
     Active Substance: WARFARIN
     Indication: ATRIAL FIBRILLATION
  6. CEFTRIAXONE SODIUM. [Suspect]
     Active Substance: CEFTRIAXONE SODIUM
     Indication: URINARY TRACT INFECTION
     Dosage: UNK
     Route: 042
  7. CEFTRIAXONE SODIUM. [Suspect]
     Active Substance: CEFTRIAXONE SODIUM
     Indication: SEPSIS
  8. VITAMIN D [Concomitant]
     Active Substance: CHOLECALCIFEROL
     Indication: ATRIAL FIBRILLATION
  9. WARFARIN [Concomitant]
     Active Substance: WARFARIN
     Indication: CHRONIC KIDNEY DISEASE

REACTIONS (2)
  - Factor V inhibition [Recovering/Resolving]
  - Coagulation factor decreased [Recovering/Resolving]
